FAERS Safety Report 14074188 (Version 2)
Quarter: 2017Q4

REPORT INFORMATION
  Report Type: Spontaneous
  Country: US (occurrence: US)
  Receive Date: 20171010
  Receipt Date: 20171222
  Transmission Date: 20180321
  Serious: Yes (Other)
  Sender: FDA-Public Use
  Company Number: US-BAYER-2017-193837

PATIENT
  Sex: Female
  Weight: 65.76 kg

DRUGS (4)
  1. MIRENA [Suspect]
     Active Substance: LEVONORGESTREL
     Indication: MENORRHAGIA
  2. MIRENA [Suspect]
     Active Substance: LEVONORGESTREL
  3. MIRENA [Suspect]
     Active Substance: LEVONORGESTREL
     Indication: CONTRACEPTION
     Dosage: 20 MCG/24HR, CONT
     Route: 015
     Dates: start: 20170915, end: 20171010
  4. PRIMACARE [Suspect]
     Active Substance: ALPHA-TOCOPHEROL ACETATE\BIOTIN\CALCIUM ASCORBATE\CALCIUM CARBONATE\CHOLECALCIFEROL\FOLIC ACID\LINOLEIC ACID\MAGNESIUM OXIDE\NIACINAMIDE\OMEGA-3 FATTY ACIDS\POTASSIUM IODIDE\PYRIDOXINE\RIBOFLAVIN\ZINC
     Route: 048

REACTIONS (3)
  - Device dislocation [None]
  - Abdominal pain lower [None]
  - Post procedural haemorrhage [None]

NARRATIVE: CASE EVENT DATE: 20171006
